FAERS Safety Report 7767297-1 (Version None)
Quarter: 2011Q3

REPORT INFORMATION
  Report Type: 
  Country: None (occurrence: None)
  Receive Date: 20110922
  Receipt Date: 20110120
  Transmission Date: 20111222
  Serious: Yes (Other)
  Sender: FDA-Public Use
  Company Number: US-ASTRAZENECA-2011SE03433

PATIENT
  Age: 51 Year
  Sex: Female
  Weight: 136.1 kg

DRUGS (14)
  1. ASPIRIN [Concomitant]
  2. VITAMIN TAB [Concomitant]
  3. SEROQUEL [Suspect]
     Indication: BIPOLAR DISORDER
     Dosage: 400 TO 800 MG
     Route: 048
     Dates: start: 20060101
  4. SEROQUEL [Suspect]
     Route: 048
  5. ALPRAZOLAM [Concomitant]
  6. ABILIFY [Concomitant]
  7. SEROQUEL [Suspect]
     Route: 048
  8. SEROQUEL [Suspect]
     Dosage: BREAKING 150 MG TABLETS IN HALF
     Route: 048
     Dates: start: 20110101
  9. LUVOX CR [Concomitant]
  10. TEMAZEPAM [Concomitant]
     Dosage: AT NIGHT
  11. CLONAZEPAM [Concomitant]
  12. SEROQUEL [Suspect]
     Dosage: 100 TO 150 MG
     Route: 048
  13. FENOFIBRATE [Concomitant]
  14. LEVOTHYROXINE SODIUM [Concomitant]

REACTIONS (6)
  - WRONG TECHNIQUE IN DRUG USAGE PROCESS [None]
  - SUICIDAL BEHAVIOUR [None]
  - CONTUSION [None]
  - DRUG DOSE OMISSION [None]
  - DRUG INEFFECTIVE [None]
  - FALL [None]
